FAERS Safety Report 5719001-6 (Version None)
Quarter: 2008Q2

REPORT INFORMATION
  Report Type: 
  Country: None (occurrence: None)
  Receive Date: 20080425
  Receipt Date: 20080417
  Transmission Date: 20081010
  Serious: Yes (Hospitalization, Other)
  Sender: FDA-Public Use
  Company Number: PHFR2008IE00729

PATIENT
  Age: 46 Year
  Sex: Female
  Weight: 83 kg

DRUGS (7)
  1. CLOZARIL [Suspect]
     Indication: SCHIZOPHRENIA
     Dosage: 650 MG/DAY
     Route: 048
     Dates: start: 19970327
  2. CLOZARIL [Suspect]
     Dosage: 44 X 100 MG ONCE
     Route: 048
     Dates: start: 20080125
  3. NUROFEN PLUS [Suspect]
     Dosage: OVERDOSE
     Route: 065
     Dates: start: 20080125
  4. MORPHINE [Suspect]
  5. PROZAC [Concomitant]
     Dosage: 60MG
     Route: 048
  6. LYRICA [Concomitant]
     Indication: PAIN
     Dosage: 200MG
     Route: 048
  7. RIVOTRIL [Concomitant]
     Indication: ANXIETY
     Dosage: 4MG/DAY
     Route: 048

REACTIONS (7)
  - ATAXIA [None]
  - CONFUSIONAL STATE [None]
  - DEPRESSED LEVEL OF CONSCIOUSNESS [None]
  - DISORIENTATION [None]
  - DRUG LEVEL INCREASED [None]
  - HYPOTENSION [None]
  - INTENTIONAL OVERDOSE [None]
